FAERS Safety Report 7354384-5 (Version None)
Quarter: 2011Q1

REPORT INFORMATION
  Report Type: 
  Country: None (occurrence: None)
  Receive Date: 20110316
  Receipt Date: 20110308
  Transmission Date: 20110831
  Serious: Yes (Other)
  Sender: FDA-Public Use
  Company Number: US-JNJFOC-20101007471

PATIENT
  Sex: Male

DRUGS (5)
  1. LEVAQUIN [Suspect]
     Indication: SKIN ULCER
     Route: 048
  2. LEVAQUIN [Suspect]
     Route: 048
  3. METOPROLOL SUCCINATE [Concomitant]
     Indication: BLOOD PRESSURE
     Route: 065
  4. METFORMIN HCL [Concomitant]
     Route: 065
  5. SIMVASTATIN [Concomitant]
     Route: 065

REACTIONS (5)
  - TENDON RUPTURE [None]
  - ROTATOR CUFF SYNDROME [None]
  - JOINT INJURY [None]
  - TENDON DISORDER [None]
  - TENDONITIS [None]
